FAERS Safety Report 8819733 (Version 2)
Quarter: 2014Q3

REPORT INFORMATION
  Report Type: Report from Study
  Country: US (occurrence: US)
  Receive Date: 20121001
  Receipt Date: 20140922
  Transmission Date: 20150326
  Serious: Yes (Other)
  Sender: FDA-Public Use
  Company Number: US-ROCHE-1124251

PATIENT
  Age: 59 Year
  Sex: Female

DRUGS (12)
  1. BENADRYL [Concomitant]
     Active Substance: DIPHENHYDRAMINE HYDROCHLORIDE
  2. TYLENOL [Concomitant]
     Active Substance: ACETAMINOPHEN
  3. CAPECITABINE [Suspect]
     Active Substance: CAPECITABINE
     Indication: HER-2 POSITIVE BREAST CANCER
     Route: 065
  4. GUIATUSS AC [Concomitant]
  5. FLOVENT INHALER [Concomitant]
  6. HERCEPTIN [Suspect]
     Active Substance: TRASTUZUMAB
     Dosage: MAINTENANCE DOSE (2MG/KG)
     Route: 042
     Dates: start: 199812
  7. HERCEPTIN [Suspect]
     Active Substance: TRASTUZUMAB
     Indication: HER-2 POSITIVE BREAST CANCER
     Dosage: LOADING DOSE (4MG/KG), ONE TIME
     Route: 042
     Dates: start: 19981210
  8. TAXOL [Concomitant]
     Active Substance: PACLITAXEL
  9. EXTENDRYL SR [Concomitant]
  10. HEPARIN [Concomitant]
     Active Substance: HEPARIN SODIUM
  11. GEMZAR [Concomitant]
     Active Substance: GEMCITABINE HYDROCHLORIDE
     Indication: HEPATIC STEATOSIS
     Route: 065
     Dates: start: 19980921
  12. NAVELBINE [Concomitant]
     Active Substance: VINORELBINE TARTRATE

REACTIONS (4)
  - Lung adenocarcinoma recurrent [Unknown]
  - Cough [Unknown]
  - Dyspnoea [Unknown]
  - Pain in extremity [Unknown]

NARRATIVE: CASE EVENT DATE: 19981230
